FAERS Safety Report 10167378 (Version 1)
Quarter: 2014Q2

REPORT INFORMATION
  Report Type: Spontaneous
  Country: US (occurrence: US)
  Receive Date: 20140512
  Receipt Date: 20140512
  Transmission Date: 20141212
  Serious: Yes (Other)
  Sender: FDA-Public Use
  Company Number: US-PFIZER INC-2014127815

PATIENT
  Sex: Male

DRUGS (1)
  1. LYRICA [Suspect]
     Dosage: 150 MG, 2X/DAY

REACTIONS (5)
  - Cardiac disorder [Unknown]
  - Oedema peripheral [Unknown]
  - Peripheral swelling [Unknown]
  - Weight increased [Unknown]
  - Renal function test abnormal [Unknown]
